FAERS Safety Report 22777798 (Version 3)
Quarter: 2023Q4

REPORT INFORMATION
  Report Type: Spontaneous
  Country: US (occurrence: US)
  Receive Date: 20230802
  Receipt Date: 20231220
  Transmission Date: 20240110
  Serious: Yes (Other)
  Sender: FDA-Public Use
  Company Number: US-SUN PHARMACEUTICAL INDUSTRIES LTD-2023R1-402254

PATIENT
  Age: 77 Year
  Sex: Female

DRUGS (1)
  1. CYMBALTA [Suspect]
     Active Substance: DULOXETINE HYDROCHLORIDE
     Indication: Antidepressant therapy
     Dosage: 60 MILLIGRAM, DAILY
     Route: 065

REACTIONS (2)
  - Drug withdrawal syndrome [Unknown]
  - Cataplexy [Recovered/Resolved]
